FAERS Safety Report 9999115 (Version 1)
Quarter: 2014Q1

REPORT INFORMATION
  Report Type: Report from Study
  Country: DE (occurrence: US)
  Receive Date: 20140312
  Receipt Date: 20140312
  Transmission Date: 20141002
  Serious: Yes (Hospitalization)
  Sender: FDA-Public Use
  Company Number: DE-009507513-1403USA001821

PATIENT
  Age: 73 Year
  Sex: Female
  Weight: 84 kg

DRUGS (10)
  1. DEXAMETHASONE [Suspect]
     Dosage: 40 MG, UNK
     Dates: start: 20131012, end: 20131014
  2. TEMSIROLIMUS [Suspect]
     Dosage: 25 MG, UNK
     Dates: start: 20131010
  3. CISPLATIN [Suspect]
     Dosage: 188 MG, UNK
     Dates: start: 20131012
  4. CYTARABINE [Concomitant]
     Dosage: 3760 MG
     Dates: start: 20131013
  5. RITUXIMAB [Concomitant]
     Dosage: 705 MG, UNK
     Dates: start: 20131011
  6. PANTOZOL [Concomitant]
     Dosage: 40 MG, UNK
  7. LYRICA [Concomitant]
     Dosage: 150 MG, UNK
  8. RULID [Concomitant]
     Dosage: 300 MG, UNK
     Dates: start: 20131008
  9. COTRIM FORTE [Concomitant]
     Dosage: 560 MG, MONDAY, WEDNESDAY AND FRIDAY
  10. SYMBICORT [Concomitant]
     Dosage: 3+320 MG (AS REPORTED)

REACTIONS (1)
  - Blood creatinine increased [Not Recovered/Not Resolved]
